FAERS Safety Report 6839960-8 (Version None)
Quarter: 2010Q3

REPORT INFORMATION
  Report Type: 
  Country: None (occurrence: None)
  Receive Date: 20100714
  Receipt Date: 20100713
  Transmission Date: 20110219
  Serious: Yes (Other)
  Sender: FDA-Public Use
  Company Number: D0068135A

PATIENT
  Sex: Male
  Weight: 95 kg

DRUGS (2)
  1. DUAC [Suspect]
     Route: 061
     Dates: start: 20080214
  2. METHYLPHENIDATE HCL [Suspect]
     Dosage: 20MG PER DAY
     Route: 065
     Dates: end: 20100401

REACTIONS (2)
  - ALANINE AMINOTRANSFERASE INCREASED [None]
  - ASPARTATE AMINOTRANSFERASE INCREASED [None]
